FAERS Safety Report 7392891-X (Version None)
Quarter: 2011Q1

REPORT INFORMATION
  Report Type: 
  Country: None (occurrence: None)
  Receive Date: 20110330
  Receipt Date: 20110330
  Transmission Date: 20110831
  Serious: No
  Sender: FDA-Public Use
  Company Number: None

PATIENT
  Age: 34 Year
  Sex: Female
  Weight: 72.5755 kg

DRUGS (1)
  1. MIRENA [Suspect]
     Indication: CONTRACEPTION
     Dates: start: 20100402, end: 20110328

REACTIONS (10)
  - SPEECH DISORDER [None]
  - ANXIETY [None]
  - STRESS [None]
  - IRRITABILITY [None]
  - FEELING JITTERY [None]
  - FEELING ABNORMAL [None]
  - INCOHERENT [None]
  - MIGRAINE [None]
  - THINKING ABNORMAL [None]
  - IMPAIRED WORK ABILITY [None]
